FAERS Safety Report 12575739 (Version 1)
Quarter: 2016Q3

REPORT INFORMATION
  Report Type: Spontaneous
  Country: US (occurrence: US)
  Receive Date: 20160720
  Receipt Date: 20160720
  Transmission Date: 20161109
  Serious: No
  Sender: FDA-Public Use
  Company Number: US-ASTRAZENECA-2016SE56302

PATIENT
  Age: 71 Year
  Sex: Female
  Weight: 56.7 kg

DRUGS (11)
  1. NEXIUM [Suspect]
     Active Substance: ESOMEPRAZOLE MAGNESIUM
     Route: 048
     Dates: start: 20160324
  2. LEVOTHYROXINE. [Concomitant]
     Active Substance: LEVOTHYROXINE
  3. ONDANSETRON [Concomitant]
     Active Substance: ONDANSETRON
  4. ROPINIROLE HYDROCHLORIDE. [Suspect]
     Active Substance: ROPINIROLE HYDROCHLORIDE
     Indication: PARKINSON^S DISEASE
     Route: 048
     Dates: start: 20160324, end: 20160428
  5. CARBIDOPA-LEVODOPA [Suspect]
     Active Substance: CARBIDOPA\LEVODOPA
     Route: 065
     Dates: start: 20160324
  6. ROPINIROLE HYDROCHLORIDE. [Suspect]
     Active Substance: ROPINIROLE HYDROCHLORIDE
     Indication: PARKINSON^S DISEASE
     Route: 048
     Dates: start: 20160428, end: 2016
  7. ROPINIROLE HYDROCHLORIDE. [Suspect]
     Active Substance: ROPINIROLE HYDROCHLORIDE
     Indication: PARKINSON^S DISEASE
     Route: 048
  8. AZILECT [Concomitant]
     Active Substance: RASAGILINE MESYLATE
  9. ALPRAZOLAM. [Concomitant]
     Active Substance: ALPRAZOLAM
  10. BUPROPION. [Concomitant]
     Active Substance: BUPROPION
  11. ZOLEDRONIC ACID [Concomitant]
     Active Substance: ZOLEDRONIC ACID

REACTIONS (2)
  - Cholelithiasis [Unknown]
  - Nausea [Unknown]

NARRATIVE: CASE EVENT DATE: 201603
